FAERS Safety Report 7591452-7 (Version None)
Quarter: 2011Q3

REPORT INFORMATION
  Report Type: 
  Country: None (occurrence: None)
  Receive Date: 20110701
  Receipt Date: 20110701
  Transmission Date: 20111222
  Serious: Yes (Other)
  Sender: FDA-Public Use
  Company Number: None

PATIENT
  Age: 67 Year
  Sex: Female

DRUGS (2)
  1. TEMAZEPAM [Suspect]
     Indication: INSOMNIA
     Dosage: 1 AT BEDTIME PO
     Route: 048
  2. TEMAZEPAM [Suspect]
     Indication: ANXIETY
     Dosage: 1 AT BEDTIME PO
     Route: 048

REACTIONS (2)
  - DRUG EFFECT INCREASED [None]
  - SEDATION [None]
